FAERS Safety Report 8460142-0 (Version None)
Quarter: 2012Q2

REPORT INFORMATION
  Report Type: 
  Country: None (occurrence: None)
  Receive Date: 20120323
  Receipt Date: 20110912
  Transmission Date: 20120825
  Serious: Yes (Hospitalization)
  Sender: FDA-Public Use
  Company Number: 163-21880-11091349

PATIENT
  Age: 76 Year
  Sex: Female

DRUGS (9)
  1. LENALIDOMIDE [Suspect]
     Indication: MULTIPLE MYELOMA
     Dosage: 10 MG, DAILY X 21 DAYS, PO
     Route: 048
     Dates: start: 20110829
  2. DEXAMETHASONE [Concomitant]
  3. PRILOSEC [Concomitant]
  4. MARINOL [Concomitant]
  5. CLARITIN [Concomitant]
  6. CITRUS CALCIUM PLUS D MAXIMUM (OS-CAL) [Concomitant]
  7. CIPRO [Concomitant]
  8. PHENOBARBITAL TAB [Concomitant]
  9. MIRALAX [Concomitant]

REACTIONS (3)
  - VOMITING [None]
  - EPISTAXIS [None]
  - NAUSEA [None]
